FAERS Safety Report 24024173 (Version 1)
Quarter: 2024Q2

REPORT INFORMATION
  Report Type: Report from Study
  Country: DE (occurrence: DE)
  Receive Date: 20240627
  Receipt Date: 20240627
  Transmission Date: 20240716
  Serious: No
  Sender: FDA-Public Use
  Company Number: DE-ROCHE-3402335

PATIENT
  Age: 88 Year
  Sex: Male

DRUGS (14)
  1. FARICIMAB [Suspect]
     Active Substance: FARICIMAB
     Indication: Neovascular age-related macular degeneration
     Dosage: START/END DATE OF MOST RECENT DOSE OF STUDY DRUG PRIOR TO AE WAS 27/JUN/2023 AT 6 MG?DOSE CONCENTRAT
     Route: 050
     Dates: start: 20230627
  2. CINNARIZINE\DIMENHYDRINATE [Concomitant]
     Active Substance: CINNARIZINE\DIMENHYDRINATE
     Indication: Dizziness
     Dates: start: 2021
  3. TORSEMIDE [Concomitant]
     Active Substance: TORSEMIDE
     Indication: Hypertension
     Dates: start: 2015
  4. LISINOPRIL [Concomitant]
     Active Substance: LISINOPRIL
     Dates: start: 202201
  5. ALBUTEROL [Concomitant]
     Active Substance: ALBUTEROL
     Indication: Dyspnoea
     Dates: start: 2022
  6. ASPIRIN [Concomitant]
     Active Substance: ASPIRIN
     Indication: Coronary artery disease
     Dosage: 100
     Dates: start: 2022
  7. TAMSULOSIN [Concomitant]
     Active Substance: TAMSULOSIN
     Indication: Benign prostatic hyperplasia
     Dates: start: 2015
  8. METAMIZOLE [Concomitant]
     Active Substance: METAMIZOLE
     Indication: Arthralgia
  9. PANTOPRAZOLE [Concomitant]
     Active Substance: PANTOPRAZOLE
  10. ELIQUIS [Concomitant]
     Active Substance: APIXABAN
     Indication: Coronary artery disease
  11. RANEXA [Concomitant]
     Active Substance: RANOLAZINE
     Indication: Coronary artery disease
  12. FOLIC ACID [Concomitant]
     Active Substance: FOLIC ACID
  13. IMBRUVICA [Concomitant]
     Active Substance: IBRUTINIB
     Indication: B-cell lymphoma
  14. NALOXONE HYDROCHLORIDE\OXYCODONE HYDROCHLORIDE [Concomitant]
     Active Substance: NALOXONE HYDROCHLORIDE\OXYCODONE HYDROCHLORIDE
     Indication: Pain

REACTIONS (1)
  - Retinal haemorrhage [Recovered/Resolved]

NARRATIVE: CASE EVENT DATE: 20230727
